FAERS Safety Report 10418694 (Version 1)
Quarter: 2014Q2

REPORT INFORMATION
  Report Type: Spontaneous
  Country: US (occurrence: None)
  Receive Date: 20140616
  Receipt Date: 20140616
  Transmission Date: 20141212
  Serious: Yes (Hospitalization, Other)
  Sender: FDA-Public Use
  Company Number: 2014-000712

PATIENT
  Sex: Female

DRUGS (9)
  1. ACTONEL (RISEDRONATE SODIUM) TABLET, UNKMG [Suspect]
     Indication: OSTEOPOROSIS
     Route: 048
     Dates: start: 2004, end: 2009
  2. ACTONEL (RISEDRONATE SODIUM) TABLET, UNKMG [Suspect]
     Indication: PROPHYLAXIS
     Route: 048
     Dates: start: 2004, end: 2009
  3. ACTONEL (RISEDRONATE SODIUM) TABLET, UNKMG [Suspect]
     Indication: OSTEOPENIA
     Route: 048
     Dates: start: 2004, end: 2009
  4. FOSAMAX (ALENDRONATE SODIUM) [Suspect]
     Indication: OSTEOPOROSIS
     Route: 048
     Dates: start: 1999, end: 2004
  5. FOSAMAX (ALENDRONATE SODIUM) [Suspect]
     Indication: PROPHYLAXIS
     Route: 048
     Dates: start: 1999, end: 2004
  6. FOSAMAX (ALENDRONATE SODIUM) [Suspect]
     Indication: OSTEOPENIA
     Route: 048
     Dates: start: 1999, end: 2004
  7. BONIVA (IBANDRONATE SODIUM) [Suspect]
     Indication: OSTEOPOROSIS
     Dates: start: 200905, end: 200102
  8. BONIVA (IBANDRONATE SODIUM) [Suspect]
     Indication: PROPHYLAXIS
     Dates: start: 200905, end: 200102
  9. BONIVA (IBANDRONATE SODIUM) [Suspect]
     Indication: OSTEOPENIA
     Dates: start: 200905, end: 200102

REACTIONS (6)
  - Femur fracture [None]
  - Pathological fracture [None]
  - Bone disorder [None]
  - Stress fracture [None]
  - Low turnover osteopathy [None]
  - Pain [None]
